FAERS Safety Report 7726108-0 (Version None)
Quarter: 2011Q3

REPORT INFORMATION
  Report Type: 
  Country: None (occurrence: None)
  Receive Date: 20110831
  Receipt Date: 20110816
  Transmission Date: 20111222
  Serious: Yes (Other)
  Sender: FDA-Public Use
  Company Number: 2011MA012027

PATIENT
  Age: 34 Year
  Sex: Female

DRUGS (2)
  1. CARBAMAZEPINE [Suspect]
     Indication: EPILEPSY
     Dates: start: 20031001
  2. MEPACRINE (MEPACRINE) [Suspect]
     Indication: SKIN DISORDER
     Dosage: 100 MG,

REACTIONS (10)
  - PARAPSORIASIS [None]
  - ARTHRALGIA [None]
  - NEUTROPHIL COUNT DECREASED [None]
  - SYSTEMIC LUPUS ERYTHEMATOSUS [None]
  - LEUKOPENIA [None]
  - SJOGREN'S SYNDROME [None]
  - DISEASE RECURRENCE [None]
  - MYALGIA [None]
  - ANTINUCLEAR ANTIBODY POSITIVE [None]
  - REFUSAL OF TREATMENT BY PATIENT [None]
